FAERS Safety Report 4388120-1 (Version None)
Quarter: 2004Q2

REPORT INFORMATION
  Report Type: 
  Country: None (occurrence: None)
  Receive Date: 20040629
  Receipt Date: 20040629
  Transmission Date: 20050107
  Serious: Yes (Hospitalization)
  Sender: FDA-Public Use
  Company Number: None

PATIENT
  Age: 47 Year
  Sex: Male
  Weight: 76 kg

DRUGS (4)
  1. PHENYTOIN [Suspect]
     Indication: CONVULSION
     Dosage: 200 MG TID ORAL
     Route: 048
     Dates: start: 20040220, end: 20040319
  2. FLUOXETINE [Suspect]
     Indication: DEPRESSION
     Dosage: 20MG QD ORAL
     Route: 048
     Dates: start: 20040220, end: 20040319
  3. GABAPENTIN [Concomitant]
  4. CYCLOBENZAPRINE [Concomitant]

REACTIONS (1)
  - DRUG LEVEL ABOVE THERAPEUTIC [None]
